FAERS Safety Report 8591670-5 (Version None)
Quarter: 2012Q3

REPORT INFORMATION
  Report Type: 
  Country: None (occurrence: None)
  Receive Date: 20120814
  Receipt Date: 20120802
  Transmission Date: 20120928
  Serious: Yes (Hospitalization)
  Sender: FDA-Public Use
  Company Number: US-BAYER-2012-028734

PATIENT
  Age: 18 Year
  Sex: Female
  Weight: 63.492 kg

DRUGS (7)
  1. YASMIN [Suspect]
     Dosage: UNK
     Dates: start: 20080301
  2. MIRALAX [Concomitant]
  3. DROSPIRENONE AND ETHINYL ESTRADIOL [Suspect]
     Indication: PREMENSTRUAL SYNDROME
     Dosage: UNK
     Dates: start: 20080301, end: 20100301
  4. PREVACID [Concomitant]
  5. DROSPIRENONE AND ETHINYL ESTRADIOL [Suspect]
     Dosage: UNK
     Dates: start: 20090101
  6. PREDNISONE TAB [Concomitant]
     Dosage: 20 MG, UNK
  7. STOOL SOFTENER [Concomitant]

REACTIONS (4)
  - PULMONARY INFARCTION [None]
  - PAIN [None]
  - PULMONARY EMBOLISM [None]
  - INJURY [None]
